FAERS Safety Report 16177629 (Version 1)
Quarter: 2019Q2

REPORT INFORMATION
  Report Type: Spontaneous
  Country: GB (occurrence: GB)
  Receive Date: 20190410
  Receipt Date: 20190410
  Transmission Date: 20190711
  Serious: Yes (Other)
  Sender: FDA-Public Use
  Company Number: GB-AMGEN-GBRSP2019024272

PATIENT
  Age: 61 Year
  Sex: Female

DRUGS (19)
  1. PROLIA [Suspect]
     Active Substance: DENOSUMAB
     Dosage: 60 MG, Q6MO
     Route: 058
     Dates: start: 20180227
  2. BENDROFLUMETHIAZIDE [Concomitant]
     Active Substance: BENDROFLUMETHIAZIDE
     Dosage: 2.5 MILLIGRAM, ONE QD, 28 TABLETS
  3. PREDNISOLONE. [Concomitant]
     Active Substance: PREDNISOLONE
     Indication: RHEUMATOID ARTHRITIS
  4. SPASMONAL [Concomitant]
     Indication: ABDOMINAL PAIN
     Dosage: 60 MILLIGRAM, 168 CAPSULE, ONE OR TWO TID
  5. INTERFERON [Suspect]
     Active Substance: INTERFERON
     Indication: PRODUCT USED FOR UNKNOWN INDICATION
     Route: 065
  6. PROLIA [Suspect]
     Active Substance: DENOSUMAB
     Indication: OSTEOPOROSIS
     Dosage: UNK
     Route: 058
  7. ADALIMUMAB [Concomitant]
     Active Substance: ADALIMUMAB
     Indication: ARTHRITIS ENTEROPATHIC
     Dosage: 40 MILLIGRAM
     Route: 065
  8. COSMOCOL [Concomitant]
     Indication: CONSTIPATION
     Dosage: 30 SACHET
     Route: 048
  9. SALOFALK [MESALAZINE] [Concomitant]
     Active Substance: MESALAMINE
     Indication: COLITIS
     Dosage: 2 GRAM/59 ML ENEMA, 7 ENEMA, 2 AT BED TIME
  10. ASACOL [Concomitant]
     Active Substance: MESALAMINE
     Dosage: 400 MILLIGRAM, 112 TABLET
  11. CALCICHEW-D3 FORTE [Concomitant]
     Active Substance: CALCIUM\CHOLECALCIFEROL
     Dosage: 56 TABLETS, 2 DAILY
  12. CYCLIZINE [Concomitant]
     Active Substance: CYCLIZINE
     Indication: NAUSEA
     Dosage: 50 MILLIGRAM, ONE PRN TID, 56 TABLET
  13. ZOPICLONE [Concomitant]
     Active Substance: ZOPICLONE
     Indication: INSOMNIA
     Dosage: 7.5 MILLIGRAM, ONE QHS, 28 TABLETS
  14. ACIDEX ADVANCE [Concomitant]
     Indication: GASTROOESOPHAGEAL REFLUX DISEASE
     Dosage: 500 MILLILITER
     Route: 048
  15. VENTOLINE [Concomitant]
     Active Substance: ALBUTEROL
     Dosage: 100 MICROGRAM, 200 DOSE 2 PUFF, DOSE EVOHALER
  16. BUSCOPAN [Concomitant]
     Active Substance: BUTYLSCOPOLAMINE BROMIDE
     Dosage: 10 MILLIGRAM, 56 TABLET, 2 AT NIGHT
  17. BUTEC [Concomitant]
     Active Substance: BUPRENORPHINE
     Dosage: 15 MICROGRAM, 4 PATCH, 1 PATCH EVERY 7 DAYS
     Route: 062
  18. PREDNISOLONE. [Concomitant]
     Active Substance: PREDNISOLONE
     Indication: COLITIS
     Dosage: 5 MILLIGRAM, 112 TABLETS, 4 DAILY
  19. COCODAMOL [Concomitant]
     Active Substance: ACETAMINOPHEN\CODEINE PHOSPHATE
     Dosage: 8 MILLIGRAM PER 500 MG, 200 TABLETS, 2 QID

REACTIONS (5)
  - Arthralgia [Not Recovered/Not Resolved]
  - Tremor [Unknown]
  - Weight decreased [Recovered/Resolved]
  - Alopecia [Not Recovered/Not Resolved]
  - Pain [Unknown]

NARRATIVE: CASE EVENT DATE: 201903
